FAERS Safety Report 7592637-6 (Version None)
Quarter: 2011Q3

REPORT INFORMATION
  Report Type: 
  Country: None (occurrence: None)
  Receive Date: 20110706
  Receipt Date: 20110618
  Transmission Date: 20111222
  Serious: No
  Sender: FDA-Public Use
  Company Number: US-B.I. PHARMACEUTICALS,INC./RIDGEFIELD-2011-BP-15997BP

PATIENT
  Age: 79 Year
  Sex: Male

DRUGS (1)
  1. COMBIVENT [Suspect]
     Route: 055
     Dates: start: 20010101

REACTIONS (2)
  - INTENTIONAL DRUG MISUSE [None]
  - PRODUCT TASTE ABNORMAL [None]
